FAERS Safety Report 25486469 (Version 1)
Quarter: 2025Q2

REPORT INFORMATION
  Report Type: Report from Study
  Country: US (occurrence: US)
  Receive Date: 20250627
  Receipt Date: 20250627
  Transmission Date: 20250717
  Serious: Yes (Life-Threatening, Other)
  Sender: ABBVIE
  Company Number: US-ABBVIE-6346819

PATIENT
  Age: 72 Year
  Sex: Male

DRUGS (1)
  1. RINVOQ [Suspect]
     Active Substance: UPADACITINIB
     Indication: Product used for unknown indication
     Route: 048
     Dates: start: 20220301, end: 2025

REACTIONS (5)
  - Kidney infection [Recovered/Resolved]
  - Neoplasm malignant [Not Recovered/Not Resolved]
  - Pneumonia [Recovered/Resolved]
  - Sepsis [Unknown]
  - Immunosuppression [Unknown]

NARRATIVE: CASE EVENT DATE: 20241201
